FAERS Safety Report 25661769 (Version 1)
Quarter: 2025Q3

REPORT INFORMATION
  Report Type: Other
  Country: GB (occurrence: GB)
  Receive Date: 20250809
  Receipt Date: 20250809
  Transmission Date: 20251020
  Serious: Yes (Other)
  Sender: GLENMARK
  Company Number: GB-MHRA-EMIS-1984-425c8e65-d77c-4e49-836b-b65772bee9bd

PATIENT
  Age: 69 Year
  Sex: Female
  Weight: 104 kg

DRUGS (2)
  1. ROSUVASTATIN CALCIUM [Suspect]
     Active Substance: ROSUVASTATIN CALCIUM
     Indication: Product used for unknown indication
     Route: 065
     Dates: start: 20250707, end: 20250724
  2. DIBUCAINE HYDROCHLORIDE\PREDNISOLONE [Concomitant]
     Active Substance: DIBUCAINE HYDROCHLORIDE\PREDNISOLONE
     Indication: Product used for unknown indication
     Dosage: 30 GRAM, BID (TO PERIANAL REGION)
     Route: 065
     Dates: start: 20250707

REACTIONS (2)
  - Swollen tongue [Unknown]
  - Nausea [Unknown]
